FAERS Safety Report 8444740-6 (Version None)
Quarter: 2012Q2

REPORT INFORMATION
  Report Type: 
  Country: None (occurrence: None)
  Receive Date: 20120618
  Receipt Date: 20120611
  Transmission Date: 20120825
  Serious: Yes (Death, Hospitalization)
  Sender: FDA-Public Use
  Company Number: MX-ELI_LILLY_AND_COMPANY-MX201110002717

PATIENT
  Sex: Female
  Weight: 33 kg

DRUGS (5)
  1. CETUXIMAB BI [Suspect]
     Indication: HEAD AND NECK CANCER
     Dosage: 400 MG/M2, OTHER (DAY ONE OF CYCLE ONE ONLY)
     Route: 042
     Dates: start: 20110923, end: 20110923
  2. FLUOROURACIL [Suspect]
     Indication: HEAD AND NECK CANCER
     Dosage: 1000 MG/M2, OTHER (ON DAY ONE TO FOUR)
     Route: 042
     Dates: start: 20110923, end: 20110926
  3. CETUXIMAB BI [Suspect]
     Dosage: 200 MG, WEEKLY (1/W)
     Route: 042
     Dates: end: 20111110
  4. CISPLATIN [Suspect]
     Indication: HEAD AND NECK CANCER
     Dosage: 100 MG/M2, OTHER (DAY ONE EVERY CYCLE)
     Route: 042
     Dates: start: 20110923, end: 20110923
  5. CETUXIMAB BI [Suspect]
     Dosage: 250 MG/M2, OTHER (ON DAY ONE, EIGHT AND 15 OF EVERY CYCLE)
     Route: 042
     Dates: start: 20110930

REACTIONS (5)
  - PNEUMONIA [None]
  - NEUTROPENIA [None]
  - RESPIRATORY FAILURE [None]
  - SEPTIC SHOCK [None]
  - THROMBOCYTOPENIA [None]
